FAERS Safety Report 13158601 (Version 2)
Quarter: 2021Q2

REPORT INFORMATION
  Report Type: Report from Study
  Country: US (occurrence: US)
  Receive Date: 20170127
  Receipt Date: 20210621
  Transmission Date: 20210716
  Serious: Yes (Hospitalization)
  Sender: FDA-Public Use
  Company Number: US-PFIZER INC-2017022095

PATIENT
  Age: 13 Year
  Sex: Female
  Weight: 36.2 kg

DRUGS (11)
  1. INCB018424 [Suspect]
     Active Substance: RUXOLITINIB
     Indication: ACUTE LYMPHOCYTIC LEUKAEMIA
     Dosage: 50 MG, BID, TABLET
     Route: 048
     Dates: start: 20160930
  2. MERCAPTOPURINE. [Suspect]
     Active Substance: MERCAPTOPURINE
     Indication: CHEMOTHERAPY
     Dosage: 75 MG, QD (QHS), TABLET
     Route: 048
     Dates: start: 20160930, end: 20161213
  3. CYTARABINE. [Suspect]
     Active Substance: CYTARABINE
     Indication: CHEMOTHERAPY
     Dosage: 98 MG, EVERY 28 (Q28) DAYS
     Route: 058
     Dates: start: 20170428
  4. CYTARABINE. [Suspect]
     Active Substance: CYTARABINE
     Indication: CHEMOTHERAPY
     Dosage: 98 MG, EVERY 28 (Q28) DAYS
     Route: 058
     Dates: start: 20160930, end: 20161219
  5. CYCLOPHOSPHAMIDE. [Suspect]
     Active Substance: CYCLOPHOSPHAMIDE
     Indication: CHEMOTHERAPY
     Dosage: 1310 MG, EVERY 28 (Q28) DAYS
     Route: 042
     Dates: start: 20160930, end: 20161219
  6. CYCLOPHOSPHAMIDE. [Suspect]
     Active Substance: CYCLOPHOSPHAMIDE
     Indication: CHEMOTHERAPY
     Dosage: 1310 MG, EVERY 28 (Q28) DAYS
     Route: 042
     Dates: start: 20170427
  7. PEGASPARGASE [Suspect]
     Active Substance: PEGASPARGASE
     Indication: CHEMOTHERAPY
  8. VINCRISTINE SULFATE. [Suspect]
     Active Substance: VINCRISTINE SULFATE
     Indication: CHEMOTHERAPY
     Dosage: 1.97 MG, ONCE
     Route: 042
     Dates: start: 20161014
  9. VINCRISTINE SULFATE. [Suspect]
     Active Substance: VINCRISTINE SULFATE
     Indication: CHEMOTHERAPY
  10. MERCAPTOPURINE. [Suspect]
     Active Substance: MERCAPTOPURINE
     Indication: CHEMOTHERAPY
     Dosage: 75 MG, QD (QHS),  TABLET
     Route: 048
     Dates: start: 20170103
  11. PEGASPARGASE [Suspect]
     Active Substance: PEGASPARGASE
     Indication: CHEMOTHERAPY
     Dosage: 3300 UNITS, ONCE
     Route: 042
     Dates: start: 20161014

REACTIONS (1)
  - Febrile neutropenia [Recovered/Resolved]

NARRATIVE: CASE EVENT DATE: 20161219
